FAERS Safety Report 5545721-2 (Version None)
Quarter: 2007Q4

REPORT INFORMATION
  Report Type: 
  Country: None (occurrence: None)
  Receive Date: 20071207
  Receipt Date: 20071126
  Transmission Date: 20080405
  Serious: Yes (Hospitalization)
  Sender: FDA-Public Use
  Company Number: 2007AL005105

PATIENT
  Age: 81 Year
  Sex: Female

DRUGS (5)
  1. DIGOXIN [Suspect]
     Indication: ATRIAL FIBRILLATION
     Dosage: 62.5 MCG; QD; PO
     Route: 048
     Dates: start: 20040304, end: 20070921
  2. FUROSEMIDE [Concomitant]
  3. CANDESARTAN CILEXETIL [Concomitant]
  4. LEVOTHYROXINE SODIUM [Concomitant]
  5. SIMVASTATIN [Concomitant]

REACTIONS (2)
  - HYPOKALAEMIA [None]
  - THERAPEUTIC AGENT TOXICITY [None]
